FAERS Safety Report 9357821 (Version 1)
Quarter: 2013Q2

REPORT INFORMATION
  Report Type: Spontaneous
  Country: US (occurrence: US)
  Receive Date: 20130620
  Receipt Date: 20130620
  Transmission Date: 20140414
  Serious: No
  Sender: FDA-Public Use
  Company Number: US-009507513-1306USA006821

PATIENT
  Age: 42 Year
  Sex: Male
  Weight: 83.9 kg

DRUGS (1)
  1. SINGULAIR [Suspect]
     Dosage: UNK
     Dates: start: 2003

REACTIONS (2)
  - Anger [Unknown]
  - Agitation [Unknown]
